FAERS Safety Report 6286367-0 (Version None)
Quarter: 2009Q3

REPORT INFORMATION
  Report Type: 
  Country: None (occurrence: None)
  Receive Date: 20090727
  Receipt Date: 20090727
  Transmission Date: 20100115
  Serious: Yes (Life-Threatening)
  Sender: FDA-Public Use
  Company Number: None

PATIENT
  Age: 10 Year
  Sex: Male
  Weight: 45.3597 kg

DRUGS (1)
  1. POTASSIUM CHLORIDE [Suspect]
     Indication: MEDICATION ERROR

REACTIONS (4)
  - HYPERKALAEMIA [None]
  - MEDICATION ERROR [None]
  - OVERDOSE [None]
  - RENAL FAILURE [None]
